FAERS Safety Report 11292963 (Version 2)
Quarter: 2015Q3

REPORT INFORMATION
  Report Type: Spontaneous
  Country: DE (occurrence: DE)
  Receive Date: 20150722
  Receipt Date: 20150819
  Transmission Date: 20151125
  Serious: Yes (Other)
  Sender: FDA-Public Use
  Company Number: DE-ASTELLAS-2015US023648

PATIENT
  Age: 67 Year
  Sex: Male
  Weight: 101 kg

DRUGS (7)
  1. TRENANTONE [Concomitant]
     Active Substance: LEUPROLIDE ACETATE
     Indication: PROSTATE CANCER
     Dosage: UNK UNK, EVERY THREE MONTHS
     Route: 058
     Dates: start: 2007
  2. SEVREDOL [Concomitant]
     Active Substance: MORPHINE
     Indication: PAIN
     Dosage: UNK UNK, AS NEEDED
     Route: 065
  3. ZOLEDRONIC ACID [Concomitant]
     Active Substance: ZOLEDRONIC ACID
     Indication: PROSTATE CANCER
     Dosage: UNK UNK, EVERY 4 WEEKS
     Route: 042
     Dates: start: 2011
  4. XTANDI [Suspect]
     Active Substance: ENZALUTAMIDE
     Route: 048
     Dates: start: 20150413, end: 20150428
  5. XTANDI [Suspect]
     Active Substance: ENZALUTAMIDE
     Indication: PROSTATE CANCER
     Route: 048
     Dates: start: 20150330, end: 20150413
  6. NORSPAN [Concomitant]
     Active Substance: BUPRENORPHINE
     Indication: PAIN
     Dosage: UNK UNK, ONCE WEEKLY
     Route: 062
     Dates: start: 2015
  7. XTANDI [Suspect]
     Active Substance: ENZALUTAMIDE
     Route: 048
     Dates: start: 20150428, end: 20150506

REACTIONS (5)
  - Apathy [Recovered/Resolved]
  - Confusional state [Recovered/Resolved]
  - Dizziness [Recovered/Resolved]
  - Underdose [Unknown]
  - Prostatic specific antigen increased [Not Recovered/Not Resolved]

NARRATIVE: CASE EVENT DATE: 20150326
